FAERS Safety Report 4449238-8 (Version None)
Quarter: 2004Q3

REPORT INFORMATION
  Report Type: 
  Country: None (occurrence: None)
  Receive Date: 20040910
  Receipt Date: 20040826
  Transmission Date: 20050211
  Serious: Yes (Life-Threatening, Hospitalization)
  Sender: FDA-Public Use
  Company Number: 2004-FF-00505FF

PATIENT
  Age: 5 Week
  Sex: Female

DRUGS (4)
  1. VIRAMUNE [Suspect]
     Indication: VERTICAL INFECTION TRANSMISSION
     Dosage: 0.2 MG (MG) PO; ONCE
     Route: 048
     Dates: start: 20040701, end: 20040701
  2. VIRAMUNE [Suspect]
     Indication: HIV INFECTION
     Dosage: PO; DURING PREGNANCY
     Route: 048
     Dates: start: 20040624, end: 20040701
  3. RETROVIR [Concomitant]
  4. COMBIVIR [Concomitant]

REACTIONS (17)
  - ABDOMINAL DISTENSION [None]
  - AMNIOTIC CAVITY DISORDER [None]
  - ANAEMIA NEONATAL [None]
  - CAESAREAN SECTION [None]
  - DEHYDRATION [None]
  - DRUG EXPOSURE DURING PREGNANCY [None]
  - DYSPEPSIA [None]
  - FEEDING PROBLEM IN NEWBORN [None]
  - FOETAL CARDIAC DISORDER [None]
  - GASTROINTESTINAL OEDEMA [None]
  - GENERAL PHYSICAL HEALTH DETERIORATION [None]
  - INTRAVENTRICULAR HAEMORRHAGE [None]
  - NEONATAL DISORDER [None]
  - NEONATAL INTESTINAL DILATATION [None]
  - PREMATURE BABY [None]
  - REGURGITATION OF FOOD [None]
  - RESPIRATORY DISORDER NEONATAL [None]
